FAERS Safety Report 4860931-5 (Version None)
Quarter: 2005Q4

REPORT INFORMATION
  Report Type: 
  Country: None (occurrence: None)
  Receive Date: 20051216
  Receipt Date: 20051130
  Transmission Date: 20060501
  Serious: Yes (Hospitalization)
  Sender: FDA-Public Use
  Company Number: MEDI-0003866

PATIENT
  Age: 4 Month
  Sex: Female
  Weight: 5.36 kg

DRUGS (1)
  1. SYNAGIS [Suspect]
     Indication: ANTIVIRAL PROPHYLAXIS
     Dosage: 80 MG, 1 IN 30 D, INTRAMUSCULAR
     Route: 030
     Dates: start: 20051107, end: 20051107

REACTIONS (2)
  - CRYING [None]
  - PALLOR [None]
